FAERS Safety Report 5941810-9 (Version None)
Quarter: 2008Q4

REPORT INFORMATION
  Report Type: 
  Country: None (occurrence: None)
  Receive Date: 20081105
  Receipt Date: 20081104
  Transmission Date: 20090506
  Serious: Yes (Death)
  Sender: FDA-Public Use
  Company Number: PHEH2008US05777

PATIENT
  Sex: Male

DRUGS (5)
  1. ZOMETA [Suspect]
     Indication: PROSTATE CANCER METASTATIC
     Dosage: 4 MG IV WEEKLY
     Dates: start: 20051207, end: 20071228
  2. LUPRON [Concomitant]
     Indication: PROSTATE CANCER
     Dosage: 22.5 MG EVERY THREE MONTHS
     Dates: start: 20051207, end: 20071130
  3. ZOLOFT [Concomitant]
     Indication: DEPRESSION
     Dosage: 50 MEQ/KG, QD
     Route: 048
  4. COPAXONE [Concomitant]
     Indication: MULTIPLE SCLEROSIS
     Dosage: UNK
     Route: 058
  5. LORTAB [Concomitant]
     Indication: PAIN
     Dosage: 5/500 MG PRN
     Dates: start: 20060210

REACTIONS (1)
  - PROSTATE CANCER STAGE IV [None]
